FAERS Safety Report 18564397 (Version 1)
Quarter: 2020Q4

REPORT INFORMATION
  Report Type: Report from Study
  Country: AR (occurrence: AR)
  Receive Date: 20201201
  Receipt Date: 20201201
  Transmission Date: 20210114
  Serious: Yes (Hospitalization)
  Sender: FDA-Public Use
  Company Number: AR-TAKEDA-2020TUS044511

PATIENT
  Sex: Male

DRUGS (1)
  1. IDURSULFASE [Suspect]
     Active Substance: IDURSULFASE
     Indication: PRODUCT USED FOR UNKNOWN INDICATION
     Dosage: 6 MILLIGRAM, 1/WEEK
     Route: 065

REACTIONS (2)
  - Fall [Unknown]
  - Lower limb fracture [Unknown]

NARRATIVE: CASE EVENT DATE: 20201012
